FAERS Safety Report 6371767-0 (Version None)
Quarter: 2009Q3

REPORT INFORMATION
  Report Type: 
  Country: None (occurrence: None)
  Receive Date: 20090918
  Receipt Date: 20090827
  Transmission Date: 20100115
  Serious: Yes (Hospitalization)
  Sender: FDA-Public Use
  Company Number: 6054094

PATIENT
  Age: 79 Year
  Sex: Female

DRUGS (5)
  1. LEVOTHYROXINE SODIUM [Suspect]
     Indication: HYPOTHYROIDISM
     Dosage: 25 MCG
     Route: 048
     Dates: start: 20090301
  2. SINTROM [Suspect]
     Indication: ATRIAL FIBRILLATION
     Dosage: ORAL
     Dates: start: 20070101, end: 20090724
  3. COROPRES [Concomitant]
  4. NAPRILENE [Concomitant]
  5. SEGURIL [Concomitant]

REACTIONS (3)
  - ABDOMINAL DISCOMFORT [None]
  - COAGULATION TEST ABNORMAL [None]
  - DYSPNOEA [None]
